FAERS Safety Report 4348085-5 (Version None)
Quarter: 2004Q1

REPORT INFORMATION
  Report Type: 
  Country: None (occurrence: None)
  Receive Date: 20040325
  Receipt Date: 20040220
  Transmission Date: 20041129
  Serious: No
  Sender: FDA-Public Use
  Company Number: USA040258807

PATIENT
  Age: 73 Year
  Sex: Female
  Weight: 34 kg

DRUGS (9)
  1. FORTEO [Suspect]
     Indication: OSTEOPOROSIS
     Dosage: 20 UG/1 DAY
     Dates: start: 20040129
  2. EVISTA [Concomitant]
  3. MIACALCIN [Concomitant]
  4. HYZAAR [Concomitant]
  5. ATENOLOL [Concomitant]
  6. NEXIUM [Concomitant]
  7. MULTI-VITAMIN [Concomitant]
  8. VITAMIN E [Concomitant]
  9. ASPIRIN [Concomitant]

REACTIONS (8)
  - DIARRHOEA [None]
  - FEELING ABNORMAL [None]
  - GASTROENTERITIS VIRAL [None]
  - HEADACHE [None]
  - INJECTION SITE HAEMORRHAGE [None]
  - NAUSEA [None]
  - PAIN [None]
  - SOMNOLENCE [None]
